FAERS Safety Report 20263927 (Version 3)
Quarter: 2022Q2

REPORT INFORMATION
  Report Type: Report from Study
  Country: US (occurrence: US)
  Receive Date: 20211231
  Receipt Date: 20220418
  Transmission Date: 20220721
  Serious: No
  Sender: FDA-Public Use
  Company Number: US-NOVARTISTESTPH-NVSC2021US299511

PATIENT
  Sex: Male

DRUGS (1)
  1. ENTRESTO [Suspect]
     Active Substance: SACUBITRIL\VALSARTAN
     Indication: Product used for unknown indication
     Dosage: UNK (STARTED ENTRESTO APPROX ^SPRING 2021^)
     Route: 065
     Dates: start: 2021

REACTIONS (3)
  - Underdose [Unknown]
  - Inappropriate schedule of product administration [Unknown]
  - Product availability issue [Unknown]
